FAERS Safety Report 5189537-8 (Version None)
Quarter: 2006Q4

REPORT INFORMATION
  Report Type: 
  Country: None (occurrence: None)
  Receive Date: 20061215
  Receipt Date: 20061205
  Transmission Date: 20070319
  Serious: Yes (Death, Life-Threatening, Disabling)
  Sender: FDA-Public Use
  Company Number: 2006149768

PATIENT
  Age: 60 Year
  Sex: Male
  Weight: 74.4 kg

DRUGS (8)
  1. PREGABALIN (PREGABALIN) [Suspect]
     Dosage: 50 MG,3 IN 1 D, ORAL
     Route: 048
     Dates: start: 20060901
  2. MORPHINE [Suspect]
     Dosage: SEE IMAGE
     Route: 048
     Dates: start: 20060901
  3. TEMAZEPAM [Suspect]
     Dosage: 30 MG
  4. CLONAZEPAM [Suspect]
     Dosage: 2 MG
  5. LORAZEPAM [Suspect]
     Dosage: 1 MG
  6. DOCUSATE SODIUM [Concomitant]
  7. PROMETHAZINE [Concomitant]
  8. DEXTROAMPETAMINE SULFATE TAB [Concomitant]

REACTIONS (8)
  - CARDIAC ARREST [None]
  - CONFUSIONAL STATE [None]
  - COORDINATION ABNORMAL [None]
  - DELIRIUM [None]
  - FATIGUE [None]
  - LETHARGY [None]
  - OEDEMA PERIPHERAL [None]
  - THERAPY REGIMEN CHANGED [None]
